FAERS Safety Report 5965424-X (Version None)
Quarter: 2008Q4

REPORT INFORMATION
  Report Type: 
  Country: None (occurrence: None)
  Receive Date: 20081125
  Receipt Date: 20081006
  Transmission Date: 20090506
  Serious: No
  Sender: FDA-Public Use
  Company Number: US-AMGEN-KDL309317

PATIENT
  Sex: Female
  Weight: 56.8 kg

DRUGS (2)
  1. ENBREL [Suspect]
     Indication: RHEUMATOID ARTHRITIS
     Route: 058
     Dates: start: 20080801
  2. COMPAZINE [Concomitant]

REACTIONS (3)
  - DRUG EFFECT DECREASED [None]
  - DYSPHONIA [None]
  - PAIN [None]
